APPROVED DRUG PRODUCT: FINGOLIMOD HYDROCHLORIDE
Active Ingredient: FINGOLIMOD HYDROCHLORIDE
Strength: EQ 0.5MG BASE
Dosage Form/Route: CAPSULE;ORAL
Application: A207971 | Product #001
Applicant: CHARTWELL RX SCIENCES LLC
Approved: Jun 29, 2020 | RLD: No | RS: No | Type: DISCN